FAERS Safety Report 23876566 (Version 1)
Quarter: 2024Q2

REPORT INFORMATION
  Report Type: Spontaneous
  Country: IN (occurrence: IN)
  Receive Date: 20240521
  Receipt Date: 20240521
  Transmission Date: 20240715
  Serious: Yes (Other)
  Sender: FDA-Public Use
  Company Number: IN-HALEON-2173470

PATIENT
  Age: 27 Year
  Sex: Male

DRUGS (4)
  1. NICOTINE [Suspect]
     Active Substance: NICOTINE
     Indication: Product used for unknown indication
  2. NICOTINE [Suspect]
     Active Substance: NICOTINE
  3. NICOTINE [Suspect]
     Active Substance: NICOTINE
     Dosage: FOR 3 DAYS
  4. NICOTINE [Suspect]
     Active Substance: NICOTINE

REACTIONS (1)
  - Drug abuse [Unknown]
